FAERS Safety Report 6461917-X (Version None)
Quarter: 2009Q4

REPORT INFORMATION
  Report Type: 
  Country: None (occurrence: None)
  Receive Date: 20091130
  Receipt Date: 20091126
  Transmission Date: 20100525
  Serious: Yes (Death)
  Sender: FDA-Public Use
  Company Number: PHHY2009CO52043

PATIENT
  Age: 79 Year
  Sex: Female

DRUGS (1)
  1. STALEVO 100 [Suspect]
     Dosage: UNK
     Dates: start: 20090416

REACTIONS (1)
  - DEATH [None]
